FAERS Safety Report 7814636-9 (Version None)
Quarter: 2011Q4

REPORT INFORMATION
  Report Type: 
  Country: None (occurrence: None)
  Receive Date: 20111014
  Receipt Date: 20110929
  Transmission Date: 20120403
  Serious: Yes (Life-Threatening, Other)
  Sender: FDA-Public Use
  Company Number: US-BAYER-2010-009052

PATIENT
  Age: 27 Year
  Sex: Female
  Weight: 61.224 kg

DRUGS (7)
  1. YASMIN [Suspect]
     Indication: PREMENSTRUAL SYNDROME
  2. YAZ [Suspect]
     Indication: ACNE
  3. YAZ [Suspect]
     Indication: PREMENSTRUAL SYNDROME
  4. YASMIN [Suspect]
     Indication: CONTRACEPTION
     Dosage: UNK
     Dates: start: 20040101
  5. YASMIN [Suspect]
     Indication: ACNE
  6. YAZ [Suspect]
     Indication: CONTRACEPTION
     Dosage: UNK
     Dates: start: 20080124, end: 20091123
  7. ZYRTEC [Concomitant]
     Indication: RHINITIS ALLERGIC
     Route: 048

REACTIONS (7)
  - ABDOMINAL PAIN [None]
  - ANXIETY [None]
  - GALLBLADDER DISORDER [None]
  - CHOLECYSTITIS CHRONIC [None]
  - INJURY [None]
  - CHOLELITHIASIS [None]
  - PAIN [None]
